FAERS Safety Report 7716801-8 (Version None)
Quarter: 2011Q3

REPORT INFORMATION
  Report Type: 
  Country: None (occurrence: None)
  Receive Date: 20110829
  Receipt Date: 20110817
  Transmission Date: 20111222
  Serious: Yes (Congenital Anomaly)
  Sender: FDA-Public Use
  Company Number: GB-UCBSA-8014744

PATIENT
  Sex: Female
  Weight: 2.835 kg

DRUGS (4)
  1. CLOBAZAM [Suspect]
     Indication: EPILEPSY
     Dosage: DAILY
     Route: 064
  2. LEVETIRACETAM [Suspect]
     Indication: EPILEPSY
     Dosage: DAILY
     Route: 064
  3. VALPROATE SODIUM [Suspect]
     Indication: EPILEPSY
     Dosage: DAILY
     Route: 064
  4. LAMOTRIGINE [Suspect]
     Indication: EPILEPSY
     Dosage: DAILY
     Route: 064

REACTIONS (4)
  - SPINA BIFIDA [None]
  - ANORECTAL DISORDER [None]
  - MATERNAL EXPOSURE DURING PREGNANCY [None]
  - MATERNAL DRUGS AFFECTING FOETUS [None]
